FAERS Safety Report 24037078 (Version 1)
Quarter: 2024Q3

REPORT INFORMATION
  Report Type: Spontaneous
  Country: US (occurrence: US)
  Receive Date: 20240701
  Receipt Date: 20240701
  Transmission Date: 20241016
  Serious: Yes (Hospitalization, Other)
  Sender: COLLEGIUM PHARMACEUTICAL
  Company Number: US-COLLEGIUM PHARMACEUTICAL, INC.-20240600480

PATIENT
  Age: 43 Year
  Sex: Female

DRUGS (4)
  1. XTAMPZA ER [Suspect]
     Active Substance: OXYCODONE
     Indication: Back pain
     Dosage: UNK, UNKNOWN
     Route: 065
  2. MORPHINE [Suspect]
     Active Substance: MORPHINE
     Indication: Back pain
     Dosage: UNK, QD
     Route: 065
  3. UNSPECIFIED INGREDIENT [Concomitant]
     Active Substance: UNSPECIFIED INGREDIENT
     Indication: Asthma
     Dosage: UNK, UNKNOWN
  4. MONTELUKAST [Concomitant]
     Active Substance: MONTELUKAST SODIUM
     Indication: Asthma
     Dosage: UNK, UNKNOWN
     Route: 065

REACTIONS (3)
  - Asthma [Unknown]
  - Acute respiratory failure [Unknown]
  - Respiratory failure [Unknown]
